FAERS Safety Report 4454017-1 (Version None)
Quarter: 2004Q3

REPORT INFORMATION
  Report Type: 
  Country: None (occurrence: None)
  Receive Date: 20040920
  Receipt Date: 20040909
  Transmission Date: 20050211
  Serious: Yes (Other)
  Sender: FDA-Public Use
  Company Number: GB-BRISTOL-MYERS SQUIBB COMPANY-12696498

PATIENT
  Age: 46 Year
  Sex: Female

DRUGS (1)
  1. ANATENSOL [Suspect]
     Indication: SCHIZOPHRENIA

REACTIONS (1)
  - MACULOPATHY [None]
